FAERS Safety Report 7210218-0 (Version None)
Quarter: 2010Q4

REPORT INFORMATION
  Report Type: 
  Country: None (occurrence: None)
  Receive Date: 20101223
  Receipt Date: 20101215
  Transmission Date: 20110411
  Serious: Yes (Other)
  Sender: FDA-Public Use
  Company Number: 1000017772

PATIENT
  Sex: Male

DRUGS (3)
  1. BYSTOLIC [Suspect]
  2. SEROQUEL [Suspect]
  3. EFFEXOR [Suspect]

REACTIONS (2)
  - MULTIPLE DRUG OVERDOSE [None]
  - SUICIDE ATTEMPT [None]
